FAERS Safety Report 8959574 (Version 2)
Quarter: 2012Q4

REPORT INFORMATION
  Report Type: 
  Country: US (occurrence: US)
  Receive Date: 20121212
  Receipt Date: 20121227
  Transmission Date: 20130627
  Serious: Yes (Hospitalization)
  Sender: FDA-Public Use
  Company Number: US-VERTEX PHARMACEUTICALS INC.-2012-026005

PATIENT
  Age: 21 Year
  Sex: Female

DRUGS (9)
  1. KALYDECO [Suspect]
     Indication: CYSTIC FIBROSIS
  2. PANCREATIC ENZYMES [Concomitant]
  3. VITAMINS                           /00067501/ [Concomitant]
  4. ALBUTEROL                          /00139501/ [Concomitant]
  5. PULMOZYME [Concomitant]
  6. HYPERTONIC SALINE SOLUTION [Concomitant]
  7. CAYSTON [Concomitant]
  8. TOBI                               /00304201/ [Concomitant]
  9. OPIOIDS [Concomitant]

REACTIONS (3)
  - Colitis [Unknown]
  - Megacolon [None]
  - Colectomy [None]
